FAERS Safety Report 6478179-X (Version None)
Quarter: 2009Q4

REPORT INFORMATION
  Report Type: 
  Country: None (occurrence: None)
  Receive Date: 20091202
  Receipt Date: 20091116
  Transmission Date: 20100525
  Serious: Yes (Hospitalization)
  Sender: FDA-Public Use
  Company Number: AUR-APL-2009-01391

PATIENT
  Age: 36 Year
  Sex: Female

DRUGS (4)
  1. PAROXETINE HCL [Suspect]
  2. SERTRALINE HCL [Suspect]
     Dosage: ORAL
     Route: 048
  3. MILNACIPRAN [Suspect]
  4. MAPROTILINE [Suspect]

REACTIONS (5)
  - ABNORMAL BEHAVIOUR [None]
  - ACTIVATION SYNDROME [None]
  - DRUG INEFFECTIVE [None]
  - IRRITABILITY [None]
  - TREATMENT NONCOMPLIANCE [None]
